FAERS Safety Report 18737878 (Version 1)
Quarter: 2021Q1

REPORT INFORMATION
  Report Type: Report from Study
  Country: US (occurrence: US)
  Receive Date: 20210113
  Receipt Date: 20210113
  Transmission Date: 20210419
  Serious: No
  Sender: FDA-Public Use
  Company Number: US-VANDA PHARMACEUTICALS, INC-2020TASUS004184

PATIENT
  Sex: Male
  Weight: 41 kg

DRUGS (1)
  1. HETLIOZ [Suspect]
     Active Substance: TASIMELTEON
     Indication: NON-24-HOUR SLEEP-WAKE DISORDER
     Dosage: 20 MG, QD 1 HR BEFORE BEDTIME AT THE SAME TIME EVERY NIGHT
     Route: 048

REACTIONS (2)
  - Product dose omission issue [Unknown]
  - Insomnia [Unknown]
